FAERS Safety Report 6428568-4 (Version None)
Quarter: 2009Q4

REPORT INFORMATION
  Report Type: 
  Country: None (occurrence: None)
  Receive Date: 20091104
  Receipt Date: 20091104
  Transmission Date: 20100525
  Serious: Yes (Life-Threatening, Hospitalization)
  Sender: FDA-Public Use
  Company Number: None

PATIENT
  Age: 58 Year

DRUGS (1)
  1. INSULIN [Suspect]
     Dosage: 35 UNITS BID SQ
     Route: 058
     Dates: start: 20080930, end: 20081006

REACTIONS (7)
  - CONFUSIONAL STATE [None]
  - DIABETES MELLITUS [None]
  - DRUG ABUSE [None]
  - HEPATITIS C [None]
  - HYPERTENSION [None]
  - HYPOGLYCAEMIA [None]
  - SCHIZOPHRENIA, PARANOID TYPE [None]
